FAERS Safety Report 5166632-0 (Version None)
Quarter: 2006Q4

REPORT INFORMATION
  Report Type: 
  Country: None (occurrence: None)
  Receive Date: 20061129
  Receipt Date: 20061129
  Transmission Date: 20070319
  Serious: No
  Sender: FDA-Public Use
  Company Number: None

PATIENT
  Age: 62 Year
  Sex: Male

DRUGS (1)
  1. CORDARONE [Suspect]
     Dates: start: 19960101, end: 20050413

REACTIONS (8)
  - DRUG TOXICITY [None]
  - HEPATIC FIBROSIS [None]
  - HEPATIC STEATOSIS [None]
  - HEPATIC TRAUMA [None]
  - HYPOTENSION [None]
  - ISCHAEMIC HEPATITIS [None]
  - JAUNDICE [None]
  - MULTI-ORGAN FAILURE [None]
